FAERS Safety Report 4555410-9 (Version None)
Quarter: 2005Q1

REPORT INFORMATION
  Report Type: 
  Country: None (occurrence: None)
  Receive Date: 20050119
  Receipt Date: 20041217
  Transmission Date: 20050727
  Serious: Yes (Other)
  Sender: FDA-Public Use
  Company Number: PHNU2004DE04239

PATIENT
  Age: 2 Year
  Sex: Female
  Weight: 15 kg

DRUGS (1)
  1. LAMISIL [Suspect]
     Indication: TINEA CAPITIS
     Dosage: INTERMITTEND
     Dates: start: 20031101, end: 20041201

REACTIONS (8)
  - HAEMATOCRIT DECREASED [None]
  - HAEMOGLOBIN DECREASED [None]
  - LEUKOCYTOSIS [None]
  - MEAN CELL VOLUME ABNORMAL [None]
  - MICROCYTIC ANAEMIA [None]
  - THALASSAEMIA SICKLE CELL [None]
  - THROMBOCYTHAEMIA [None]
  - TREATMENT NONCOMPLIANCE [None]
